FAERS Safety Report 8222759-8 (Version None)
Quarter: 2012Q1

REPORT INFORMATION
  Report Type: 
  Country: None (occurrence: None)
  Receive Date: 20120320
  Receipt Date: 20120309
  Transmission Date: 20120608
  Serious: Yes (Hospitalization)
  Sender: FDA-Public Use
  Company Number: US-PERRIGO-12US002090

PATIENT
  Age: 44 Year
  Sex: Female

DRUGS (4)
  1. BUPROPION HCL [Concomitant]
     Indication: PRODUCT USED FOR UNKNOWN INDICATION
     Dosage: UNK
     Route: 065
  2. MIDAZOLAM HCL [Suspect]
     Indication: SEDATION
     Dosage: 4 MG, SINGLE
     Route: 065
  3. PROPRANOLOL [Concomitant]
     Indication: PRODUCT USED FOR UNKNOWN INDICATION
     Dosage: UNK
     Route: 065
  4. FENTANYL [Suspect]
     Indication: SEDATION
     Dosage: 125 MG, SINGLE
     Route: 065

REACTIONS (3)
  - SOMNOLENCE [None]
  - UNRESPONSIVE TO STIMULI [None]
  - SOMATOFORM DISORDER [None]
